FAERS Safety Report 23205306 (Version 2)
Quarter: 2024Q1

REPORT INFORMATION
  Report Type: Report from Study
  Country: US (occurrence: US)
  Receive Date: 20231120
  Receipt Date: 20240126
  Transmission Date: 20240409
  Serious: Yes (Hospitalization)
  Sender: FDA-Public Use
  Company Number: US-GILEAD-2023-0651570

PATIENT
  Age: 71 Year
  Sex: Male

DRUGS (1)
  1. IDELALISIB [Suspect]
     Active Substance: IDELALISIB
     Indication: Chronic lymphocytic leukaemia refractory
     Dosage: 150 MG, BID
     Route: 048
     Dates: start: 20210325

REACTIONS (4)
  - Diarrhoea [Unknown]
  - Dehydration [Unknown]
  - Renal disorder [Unknown]
  - Intentional dose omission [Not Recovered/Not Resolved]
